FAERS Safety Report 8062358 (Version 2)
Quarter: 2013Q1

REPORT INFORMATION
  Report Type: Spontaneous
  Country: CA (occurrence: CA)
  Receive Date: 20110801
  Receipt Date: 20130304
  Transmission Date: 20140127
  Serious: Yes (Disabling, Other)
  Sender: FDA-Public Use
  Company Number: CA-BAYER-2011-065910

PATIENT
  Age: 30 Year
  Sex: Male

DRUGS (11)
  1. AVELOX [Suspect]
     Indication: SINUSITIS
     Dosage: 400 MG, QD
     Route: 048
     Dates: start: 20110405
  2. ADVAIR [Concomitant]
  3. CLONAZEPAM [Concomitant]
  4. NAPROSYN [Concomitant]
     Dosage: 250
  5. PARIET [Concomitant]
  6. PERCOCET [Concomitant]
  7. EPSOM SALTS [Concomitant]
  8. TYLENOL ARTHRITIS [Concomitant]
  9. ROBAXACET [Concomitant]
  10. FLOVENT [Concomitant]
  11. VENTOLIN [Concomitant]

REACTIONS (17)
  - Motor dysfunction [Not Recovered/Not Resolved]
  - Unevaluable event [None]
  - Tendonitis [Not Recovered/Not Resolved]
  - Spinal disorder [Not Recovered/Not Resolved]
  - Tendon pain [Not Recovered/Not Resolved]
  - Nervous system disorder [Not Recovered/Not Resolved]
  - Visual impairment [Not Recovered/Not Resolved]
  - Insomnia [Not Recovered/Not Resolved]
  - Muscle spasticity [Not Recovered/Not Resolved]
  - Tendonitis [Not Recovered/Not Resolved]
  - Tendonitis [Not Recovered/Not Resolved]
  - Musculoskeletal stiffness [None]
  - Muscle spasms [Not Recovered/Not Resolved]
  - Memory impairment [None]
  - Disturbance in attention [None]
  - Sensory loss [None]
  - Muscle contractions involuntary [None]
